FAERS Safety Report 23567340 (Version 1)
Quarter: 2024Q1

REPORT INFORMATION
  Report Type: Spontaneous
  Country: CA (occurrence: CA)
  Receive Date: 20240226
  Receipt Date: 20240226
  Transmission Date: 20240410
  Serious: Yes (Other)
  Sender: FDA-Public Use
  Company Number: CA-ORGANON-O2402CAN001989

PATIENT
  Sex: Female

DRUGS (221)
  1. PROGESTERONE [Suspect]
     Active Substance: PROGESTERONE
     Indication: Product used for unknown indication
     Dosage: UNK
     Route: 065
  2. PROGESTERONE [Suspect]
     Active Substance: PROGESTERONE
     Dosage: UNK
     Route: 065
  3. PROGESTERONE [Suspect]
     Active Substance: PROGESTERONE
     Dosage: UNK
     Route: 065
  4. PROGESTERONE [Suspect]
     Active Substance: PROGESTERONE
     Dosage: UNK
     Route: 030
  5. PROGESTERONE [Suspect]
     Active Substance: PROGESTERONE
     Dosage: UNK
     Route: 030
  6. PROGESTERONE [Suspect]
     Active Substance: PROGESTERONE
     Dosage: UNK
     Route: 065
  7. PROGESTERONE [Suspect]
     Active Substance: PROGESTERONE
     Dosage: UNK
     Route: 030
  8. PROGESTERONE [Suspect]
     Active Substance: PROGESTERONE
     Dosage: UNK
     Route: 065
  9. PROGESTERONE [Suspect]
     Active Substance: PROGESTERONE
     Dosage: UNK
     Route: 065
  10. PROGESTERONE [Suspect]
     Active Substance: PROGESTERONE
     Dosage: UNK
     Route: 065
  11. PROGESTERONE [Suspect]
     Active Substance: PROGESTERONE
     Dosage: UNK
     Route: 065
  12. PROGESTERONE [Suspect]
     Active Substance: PROGESTERONE
     Dosage: UNK
     Route: 065
  13. PROGESTERONE [Suspect]
     Active Substance: PROGESTERONE
     Dosage: UNK
     Route: 065
  14. PROGESTERONE [Suspect]
     Active Substance: PROGESTERONE
     Dosage: UNK
     Route: 065
  15. PROGESTERONE [Suspect]
     Active Substance: PROGESTERONE
     Dosage: UNK
     Route: 065
  16. PROGESTERONE [Suspect]
     Active Substance: PROGESTERONE
     Dosage: UNK
     Route: 065
  17. PROGESTERONE [Suspect]
     Active Substance: PROGESTERONE
     Dosage: UNK
     Route: 030
  18. PROGESTERONE [Suspect]
     Active Substance: PROGESTERONE
     Dosage: UNK
     Route: 030
  19. PROGESTERONE [Suspect]
     Active Substance: PROGESTERONE
     Dosage: UNK
     Route: 065
  20. SINGULAIR [Suspect]
     Active Substance: MONTELUKAST SODIUM
     Indication: Product used for unknown indication
     Dosage: UNK
     Route: 065
  21. MONTELUKAST SODIUM [Suspect]
     Active Substance: MONTELUKAST SODIUM
     Indication: Product used for unknown indication
     Dosage: UNK
     Route: 065
  22. ABACAVIR SULFATE [Suspect]
     Active Substance: ABACAVIR SULFATE
     Indication: Product used for unknown indication
     Dosage: UNK
     Route: 065
  23. ACETAMINOPHEN [Suspect]
     Active Substance: ACETAMINOPHEN
     Indication: Product used for unknown indication
     Dosage: UNK
     Route: 065
  24. ACTEMRA [Suspect]
     Active Substance: TOCILIZUMAB
     Indication: Rheumatoid arthritis
     Dosage: 500 MILLIGRAM, Q12H
     Route: 058
  25. ACTEMRA [Suspect]
     Active Substance: TOCILIZUMAB
     Indication: Product used for unknown indication
     Dosage: 500 MILLIGRAM, QD
     Route: 058
  26. ACTEMRA [Suspect]
     Active Substance: TOCILIZUMAB
     Dosage: 500 MILLIGRAM, Q12H
     Route: 058
  27. ACTEMRA [Suspect]
     Active Substance: TOCILIZUMAB
     Dosage: 500 MILLIGRAM, Q12H
     Route: 058
  28. ACTEMRA [Suspect]
     Active Substance: TOCILIZUMAB
     Dosage: 500 MILLIGRAM, Q12H
     Route: 058
  29. ACTEMRA [Suspect]
     Active Substance: TOCILIZUMAB
     Dosage: UNK
     Route: 065
  30. ACTEMRA [Suspect]
     Active Substance: TOCILIZUMAB
     Dosage: 50 MILLIGRAM, Q12H
     Route: 058
  31. ACTEMRA [Suspect]
     Active Substance: TOCILIZUMAB
     Dosage: 100 MILLIGRAM, QD
     Route: 058
  32. ACTEMRA [Suspect]
     Active Substance: TOCILIZUMAB
     Dosage: 1000 MILLIGRAM
     Route: 058
  33. ACTEMRA [Suspect]
     Active Substance: TOCILIZUMAB
     Dosage: 1000 MILLIGRAM
     Route: 058
  34. ACTEMRA [Suspect]
     Active Substance: TOCILIZUMAB
     Dosage: 500 MILLIGRAM
     Route: 058
  35. ACTEMRA [Suspect]
     Active Substance: TOCILIZUMAB
     Indication: Rheumatoid arthritis
     Dosage: 500 MILLIGRAM, QD
     Route: 058
  36. ACTEMRA [Suspect]
     Active Substance: TOCILIZUMAB
     Indication: Product used for unknown indication
  37. ADVAIR HFA [Suspect]
     Active Substance: FLUTICASONE PROPIONATE\SALMETEROL XINAFOATE
     Indication: Product used for unknown indication
     Dosage: 500 MILLIGRAM, QD
     Route: 065
  38. ADVAIR HFA [Suspect]
     Active Substance: FLUTICASONE PROPIONATE\SALMETEROL XINAFOATE
     Dosage: 500 MILLIGRAM, Q12H
     Route: 065
  39. ADVAIR HFA [Suspect]
     Active Substance: FLUTICASONE PROPIONATE\SALMETEROL XINAFOATE
     Dosage: 500 MILLIGRAM, Q12H
     Route: 065
  40. ADVAIR HFA [Suspect]
     Active Substance: FLUTICASONE PROPIONATE\SALMETEROL XINAFOATE
     Dosage: 500 MILLIGRAM
     Route: 065
  41. ADVAIR HFA [Suspect]
     Active Substance: FLUTICASONE PROPIONATE\SALMETEROL XINAFOATE
     Dosage: 500 MILLIGRAM
     Route: 065
  42. ADVAIR HFA [Suspect]
     Active Substance: FLUTICASONE PROPIONATE\SALMETEROL XINAFOATE
     Dosage: 500 MILLIGRAM
     Route: 065
  43. ADVAIR HFA [Suspect]
     Active Substance: FLUTICASONE PROPIONATE\SALMETEROL XINAFOATE
     Dosage: 500 MILLIGRAM, Q12H
     Route: 065
  44. ADVAIR HFA [Suspect]
     Active Substance: FLUTICASONE PROPIONATE\SALMETEROL XINAFOATE
     Dosage: 500 MILLIGRAM
     Route: 065
  45. ADVAIR HFA [Suspect]
     Active Substance: FLUTICASONE PROPIONATE\SALMETEROL XINAFOATE
     Dosage: 500 MILLIGRAM, QD
     Route: 065
  46. ADVAIR HFA [Suspect]
     Active Substance: FLUTICASONE PROPIONATE\SALMETEROL XINAFOATE
     Dosage: 500 MILLIGRAM, Q12H
     Route: 065
  47. ADVAIR HFA [Suspect]
     Active Substance: FLUTICASONE PROPIONATE\SALMETEROL XINAFOATE
     Dosage: 500 MILLIGRAM, Q12H
     Route: 065
  48. ADVAIR HFA [Suspect]
     Active Substance: FLUTICASONE PROPIONATE\SALMETEROL XINAFOATE
     Dosage: 500 MILLIGRAM, Q12H
     Route: 065
  49. ADVAIR HFA [Suspect]
     Active Substance: FLUTICASONE PROPIONATE\SALMETEROL XINAFOATE
     Dosage: 500 MILLIGRAM, QD
     Route: 065
  50. ADVAIR HFA [Suspect]
     Active Substance: FLUTICASONE PROPIONATE\SALMETEROL XINAFOATE
     Dosage: 500 MILLIGRAM
     Route: 065
  51. ADVAIR HFA [Suspect]
     Active Substance: FLUTICASONE PROPIONATE\SALMETEROL XINAFOATE
     Dosage: 500 MILLIGRAM
     Route: 065
  52. ALBUTEROL SULFATE [Suspect]
     Active Substance: ALBUTEROL SULFATE
     Indication: Product used for unknown indication
     Dosage: UNK
     Route: 065
  53. ALBUTEROL SULFATE [Suspect]
     Active Substance: ALBUTEROL SULFATE
     Dosage: UNK
     Route: 065
  54. ALBUTEROL SULFATE [Suspect]
     Active Substance: ALBUTEROL SULFATE
     Dosage: UNK
     Route: 065
  55. ALBUTEROL SULFATE [Suspect]
     Active Substance: ALBUTEROL SULFATE
     Dosage: UNK
     Route: 065
  56. ALBUTEROL SULFATE [Suspect]
     Active Substance: ALBUTEROL SULFATE
     Dosage: UNK
     Route: 065
  57. ALBUTEROL SULFATE [Suspect]
     Active Substance: ALBUTEROL SULFATE
     Indication: Product used for unknown indication
     Dosage: UNK
     Route: 065
  58. ALBUTEROL SULFATE [Suspect]
     Active Substance: ALBUTEROL SULFATE
     Indication: Product used for unknown indication
     Dosage: UNK
     Route: 065
  59. ALBUTEROL SULFATE [Suspect]
     Active Substance: ALBUTEROL SULFATE
     Dosage: UNK
     Route: 065
  60. NORTRIPTYLINE [Suspect]
     Active Substance: NORTRIPTYLINE
     Indication: Product used for unknown indication
     Dosage: 10 MILLIGRAM
     Route: 065
  61. NORTRIPTYLINE [Suspect]
     Active Substance: NORTRIPTYLINE
     Dosage: 10 MILLIGRAM
     Route: 065
  62. NORTRIPTYLINE [Suspect]
     Active Substance: NORTRIPTYLINE
     Dosage: 10 MILLIGRAM
     Route: 065
  63. BUPROPION [Suspect]
     Active Substance: BUPROPION
     Indication: Product used for unknown indication
     Dosage: UNK
     Route: 065
  64. BUPROPION HYDROCHLORIDE [Suspect]
     Active Substance: BUPROPION HYDROCHLORIDE
     Indication: Product used for unknown indication
     Dosage: 150 MILLIGRAM
     Route: 065
  65. BUPROPION HYDROCHLORIDE [Suspect]
     Active Substance: BUPROPION HYDROCHLORIDE
     Dosage: 150 MILLIGRAM
     Route: 065
  66. BUPROPION HYDROCHLORIDE [Suspect]
     Active Substance: BUPROPION HYDROCHLORIDE
     Dosage: 150 MILLIGRAM
     Route: 065
  67. BUPROPION HYDROCHLORIDE [Suspect]
     Active Substance: BUPROPION HYDROCHLORIDE
     Indication: Product used for unknown indication
     Dosage: UNK
     Route: 065
  68. CETIRIZINE [Suspect]
     Active Substance: CETIRIZINE HYDROCHLORIDE
     Indication: Product used for unknown indication
     Dosage: 20 MILLIGRAM, QD
     Route: 065
  69. CETIRIZINE [Suspect]
     Active Substance: CETIRIZINE HYDROCHLORIDE
     Dosage: 20 MILLIGRAM, QD
     Route: 065
  70. CETIRIZINE [Suspect]
     Active Substance: CETIRIZINE HYDROCHLORIDE
     Dosage: 20 MILLIGRAM, QD
     Route: 065
  71. CETIRIZINE [Suspect]
     Active Substance: CETIRIZINE HYDROCHLORIDE
     Dosage: 20 MILLIGRAM, QD
     Route: 065
  72. CETIRIZINE [Suspect]
     Active Substance: CETIRIZINE HYDROCHLORIDE
     Indication: Product used for unknown indication
     Dosage: 20 MILLIGRAM, QD
     Route: 065
  73. CETIRIZINE HYDROCHLORIDE [Suspect]
     Active Substance: CETIRIZINE HYDROCHLORIDE
     Indication: Product used for unknown indication
     Dosage: 20 MILLIGRAM
     Route: 065
  74. CETIRIZINE HYDROCHLORIDE [Suspect]
     Active Substance: CETIRIZINE HYDROCHLORIDE
     Dosage: 20 MILLIGRAM
     Route: 065
  75. CETIRIZINE HYDROCHLORIDE [Suspect]
     Active Substance: CETIRIZINE HYDROCHLORIDE
     Indication: Product used for unknown indication
     Dosage: 20 MILLIGRAM
     Route: 065
  76. CITALOPRAM HYDROBROMIDE [Suspect]
     Active Substance: CITALOPRAM HYDROBROMIDE
     Indication: Product used for unknown indication
     Dosage: UNK
     Route: 065
  77. CITALOPRAM HYDROBROMIDE [Suspect]
     Active Substance: CITALOPRAM HYDROBROMIDE
     Dosage: UNK
     Route: 065
  78. CITALOPRAM HYDROBROMIDE [Suspect]
     Active Substance: CITALOPRAM HYDROBROMIDE
     Dosage: UNK
     Route: 065
  79. CLONIDINE [Suspect]
     Active Substance: CLONIDINE
     Indication: Product used for unknown indication
     Dosage: UNK
     Route: 065
  80. CLONIDINE [Suspect]
     Active Substance: CLONIDINE
     Indication: Eczema
     Dosage: UNK
     Route: 065
  81. CLONIDINE [Suspect]
     Active Substance: CLONIDINE
     Dosage: UNK
     Route: 065
  82. CLONIDINE HYDROCHLORIDE [Suspect]
     Active Substance: CLONIDINE HYDROCHLORIDE
     Indication: Eczema
     Dosage: UNK
     Route: 065
  83. CLONIDINE HYDROCHLORIDE [Suspect]
     Active Substance: CLONIDINE HYDROCHLORIDE
     Indication: Product used for unknown indication
     Dosage: UNK
     Route: 065
  84. CLONIDINE HYDROCHLORIDE [Suspect]
     Active Substance: CLONIDINE HYDROCHLORIDE
     Dosage: UNK
     Route: 065
  85. CODEINE [Suspect]
     Active Substance: CODEINE
     Indication: Product used for unknown indication
     Dosage: UNK
     Route: 065
  86. CRINONE [Suspect]
     Active Substance: PROGESTERONE
     Indication: Product used for unknown indication
     Dosage: UNK
     Route: 065
  87. CYCLOBENZAPRINE [Suspect]
     Active Substance: CYCLOBENZAPRINE
     Indication: Eczema
     Dosage: UNK
     Route: 047
  88. CYCLOBENZAPRINE HYDROCHLORIDE [Suspect]
     Active Substance: CYCLOBENZAPRINE HYDROCHLORIDE
     Indication: Eczema
     Dosage: UNK
     Route: 065
  89. CYCLOBENZAPRINE HYDROCHLORIDE [Suspect]
     Active Substance: CYCLOBENZAPRINE HYDROCHLORIDE
     Indication: Product used for unknown indication
     Dosage: UNK
     Route: 065
  90. DEMEROL [Suspect]
     Active Substance: MEPERIDINE HYDROCHLORIDE
     Indication: Product used for unknown indication
     Dosage: UNK
     Route: 065
  91. DICLOFENAC SODIUM [Suspect]
     Active Substance: DICLOFENAC\DICLOFENAC SODIUM
     Indication: Product used for unknown indication
     Dosage: UNK
     Route: 065
  92. DIPHENHYDRAMINE [Suspect]
     Active Substance: DIPHENHYDRAMINE
     Indication: Product used for unknown indication
     Dosage: 75 MILLIGRAM
     Route: 065
  93. DIPHENHYDRAMINE [Suspect]
     Active Substance: DIPHENHYDRAMINE
     Dosage: 75 MILLIGRAM
     Route: 065
  94. DIPHENHYDRAMINE [Suspect]
     Active Substance: DIPHENHYDRAMINE
     Dosage: 75 MILLIGRAM
     Route: 065
  95. DIPHENHYDRAMINE [Suspect]
     Active Substance: DIPHENHYDRAMINE
     Indication: Product used for unknown indication
     Dosage: UNK
     Route: 065
  96. DIPHENHYDRAMINE [Suspect]
     Active Substance: DIPHENHYDRAMINE
     Dosage: 75 MILLIGRAM
     Route: 065
  97. DIPHENHYDRAMINE [Suspect]
     Active Substance: DIPHENHYDRAMINE
     Dosage: 75 MILLIGRAM, QD
     Route: 065
  98. DIPHENHYDRAMINE [Suspect]
     Active Substance: DIPHENHYDRAMINE
     Dosage: 75 MILLIGRAM, QD
     Route: 065
  99. DIPHENHYDRAMINE [Suspect]
     Active Substance: DIPHENHYDRAMINE
     Dosage: 75 MILLIGRAM, QD
     Route: 065
  100. DIPHENHYDRAMINE [Suspect]
     Active Substance: DIPHENHYDRAMINE
     Dosage: 75 MILLIGRAM
     Route: 065
  101. DIPHENHYDRAMINE [Suspect]
     Active Substance: DIPHENHYDRAMINE
     Indication: Product used for unknown indication
     Dosage: 75 MILLIGRAM
     Route: 065
  102. DOLUTEGRAVIR SODIUM [Concomitant]
     Active Substance: DOLUTEGRAVIR SODIUM
     Indication: Product used for unknown indication
     Dosage: UNK
     Route: 065
  103. ENBREL [Suspect]
     Active Substance: ETANERCEPT
     Indication: Rheumatoid arthritis
     Dosage: UNK
     Route: 065
  104. FLOVENT [Suspect]
     Active Substance: FLUTICASONE PROPIONATE
     Indication: Product used for unknown indication
     Dosage: UNK
     Route: 065
  105. FLUCONAZOLE [Suspect]
     Active Substance: FLUCONAZOLE
     Indication: Product used for unknown indication
     Dosage: UNK
     Route: 065
  106. FLUTICASONE PROPIONATE [Suspect]
     Active Substance: FLUTICASONE PROPIONATE
     Indication: Product used for unknown indication
     Dosage: 500 MILLIGRAM, Q12H
     Route: 065
  107. FLUTICASONE PROPIONATE [Suspect]
     Active Substance: FLUTICASONE PROPIONATE
     Dosage: 500 MILLIGRAM
     Route: 065
  108. FLUTICASONE PROPIONATE [Suspect]
     Active Substance: FLUTICASONE PROPIONATE
     Dosage: 500 MILLIGRAM
     Route: 065
  109. FLUTICASONE PROPIONATE [Suspect]
     Active Substance: FLUTICASONE PROPIONATE
     Dosage: 500 MILLIGRAM, QD
     Route: 065
  110. FLUTICASONE PROPIONATE [Suspect]
     Active Substance: FLUTICASONE PROPIONATE
     Dosage: 500 MILLIGRAM, Q12H
     Route: 065
  111. FLUTICASONE PROPIONATE [Suspect]
     Active Substance: FLUTICASONE PROPIONATE
     Dosage: 500 MILLIGRAM, Q12H
     Route: 065
  112. FLUTICASONE PROPIONATE [Suspect]
     Active Substance: FLUTICASONE PROPIONATE
     Dosage: 500 MILLIGRAM, QD
     Route: 065
  113. FLUTICASONE PROPIONATE [Suspect]
     Active Substance: FLUTICASONE PROPIONATE
     Dosage: 500 MILLIGRAM
     Route: 065
  114. FLUTICASONE PROPIONATE [Suspect]
     Active Substance: FLUTICASONE PROPIONATE
     Dosage: 500 MILLIGRAM
     Route: 065
  115. FUROSEMIDE [Suspect]
     Active Substance: FUROSEMIDE
     Indication: Product used for unknown indication
     Dosage: UNK
     Route: 065
  116. GABAPENTIN [Suspect]
     Active Substance: GABAPENTIN
     Indication: Product used for unknown indication
     Dosage: UNK
     Route: 065
  117. HUMIRA [Suspect]
     Active Substance: ADALIMUMAB
     Indication: Product used for unknown indication
     Dosage: UNK
     Route: 058
  118. HUMIRA [Suspect]
     Active Substance: ADALIMUMAB
     Dosage: UNK
     Route: 058
  119. HYDROMORPHONE [Suspect]
     Active Substance: HYDROMORPHONE
     Indication: Product used for unknown indication
     Dosage: UNK
     Route: 065
  120. HYDROMORPHONE [Suspect]
     Active Substance: HYDROMORPHONE
     Indication: Product used for unknown indication
     Dosage: UNK
     Route: 065
  121. HYDROMORPHONE HYDROCHLORIDE [Suspect]
     Active Substance: HYDROMORPHONE HYDROCHLORIDE
     Indication: Product used for unknown indication
     Dosage: UNK
     Route: 065
  122. HYDROMORPHONE HYDROCHLORIDE [Suspect]
     Active Substance: HYDROMORPHONE HYDROCHLORIDE
     Indication: Product used for unknown indication
     Dosage: UNK
     Route: 065
  123. HYDROMORPHONE HYDROCHLORIDE [Suspect]
     Active Substance: HYDROMORPHONE HYDROCHLORIDE
     Dosage: UNK
     Route: 065
  124. KETOPROFEN [Suspect]
     Active Substance: KETOPROFEN
     Indication: Product used for unknown indication
     Dosage: UNK
     Route: 065
  125. METHYLPREDNISOLONE [Suspect]
     Active Substance: METHYLPREDNISOLONE
     Indication: Product used for unknown indication
     Dosage: 1 DOSAGE FORM
     Route: 065
  126. METHYLPREDNISOLONE [Suspect]
     Active Substance: METHYLPREDNISOLONE
     Indication: Product used for unknown indication
     Dosage: UNK
     Route: 065
  127. METHYLPREDNISOLONE ACETATE [Suspect]
     Active Substance: METHYLPREDNISOLONE ACETATE
     Indication: Product used for unknown indication
     Dosage: UNK
     Route: 065
  128. METHYLPREDNISOLONE ACETATE [Suspect]
     Active Substance: METHYLPREDNISOLONE ACETATE
     Dosage: UNK
     Route: 065
  129. METHYLPREDNISOLONE ACETATE [Suspect]
     Active Substance: METHYLPREDNISOLONE ACETATE
     Dosage: 1 DOSAGE FORM, QD
     Route: 065
  130. METHYLPREDNISOLONE ACETATE [Suspect]
     Active Substance: METHYLPREDNISOLONE ACETATE
     Dosage: 1 DOSAGE FORM
     Route: 065
  131. METHYLPREDNISOLONE ACETATE [Suspect]
     Active Substance: METHYLPREDNISOLONE ACETATE
     Dosage: 1 DOSAGE FORM
     Route: 065
  132. METHYLPREDNISOLONE ACETATE [Suspect]
     Active Substance: METHYLPREDNISOLONE ACETATE
     Dosage: UNK
     Route: 065
  133. METHYLPREDNISOLONE ACETATE [Suspect]
     Active Substance: METHYLPREDNISOLONE ACETATE
     Dosage: UNK
     Route: 065
  134. METHYLPREDNISOLONE ACETATE [Suspect]
     Active Substance: METHYLPREDNISOLONE ACETATE
     Dosage: UNK
     Route: 065
  135. METHYLPREDNISOLONE ACETATE [Suspect]
     Active Substance: METHYLPREDNISOLONE ACETATE
     Indication: Product used for unknown indication
     Dosage: 1 DOSAGE FORM
     Route: 065
  136. METHYLPREDNISOLONE SODIUM SUCCINATE [Suspect]
     Active Substance: METHYLPREDNISOLONE SODIUM SUCCINATE
     Indication: Product used for unknown indication
     Dosage: 1 DOSAGE FORM
     Route: 065
  137. MORPHINE SULFATE [Suspect]
     Active Substance: MORPHINE SULFATE
     Indication: Product used for unknown indication
     Dosage: UNK
     Route: 058
  138. MORPHINE SULFATE [Suspect]
     Active Substance: MORPHINE SULFATE
     Indication: Product used for unknown indication
     Dosage: UNK
     Route: 058
  139. MOXIFLOXACIN HYDROCHLORIDE [Suspect]
     Active Substance: MOXIFLOXACIN HYDROCHLORIDE\MOXIFLOXACIN HYDROCHLORIDE MONOHYDRATE
     Indication: Product used for unknown indication
     Dosage: UNK
     Route: 065
  140. MOXIFLOXACIN HYDROCHLORIDE [Suspect]
     Active Substance: MOXIFLOXACIN HYDROCHLORIDE\MOXIFLOXACIN HYDROCHLORIDE MONOHYDRATE
     Dosage: UNK
     Route: 058
  141. NORTRIPTYLINE [Suspect]
     Active Substance: NORTRIPTYLINE
     Indication: Product used for unknown indication
     Dosage: UNK
     Route: 065
  142. NORTRIPTYLINE HYDROCHLORIDE [Suspect]
     Active Substance: NORTRIPTYLINE HYDROCHLORIDE
     Indication: Product used for unknown indication
     Dosage: UNK
     Route: 065
  143. NORTRIPTYLINE HYDROCHLORIDE [Suspect]
     Active Substance: NORTRIPTYLINE HYDROCHLORIDE
     Indication: Product used for unknown indication
     Dosage: 10 MILLIGRAM
     Route: 065
  144. ONDANSETRON [Suspect]
     Active Substance: ONDANSETRON
     Indication: Product used for unknown indication
     Dosage: UNK
     Route: 065
  145. ORENCIA [Suspect]
     Active Substance: ABATACEPT
     Indication: Product used for unknown indication
     Dosage: UNK
     Route: 065
  146. ORENCIA [Suspect]
     Active Substance: ABATACEPT
     Dosage: 1 DOSAGE FORM, QD
     Route: 042
  147. PANTOPRAZOLE MAGNESIUM [Suspect]
     Active Substance: PANTOPRAZOLE MAGNESIUM
     Indication: Product used for unknown indication
     Dosage: UNK
     Route: 065
  148. PANTOPRAZOLE MAGNESIUM [Suspect]
     Active Substance: PANTOPRAZOLE MAGNESIUM
     Dosage: UNK
     Route: 065
  149. PANTOPRAZOLE MAGNESIUM [Suspect]
     Active Substance: PANTOPRAZOLE MAGNESIUM
     Dosage: UNK
     Route: 065
  150. PANTOPRAZOLE MAGNESIUM [Suspect]
     Active Substance: PANTOPRAZOLE MAGNESIUM
     Dosage: UNK
     Route: 065
  151. PANTOPRAZOLE MAGNESIUM [Suspect]
     Active Substance: PANTOPRAZOLE MAGNESIUM
     Dosage: UNK
     Route: 065
  152. PANTOPRAZOLE MAGNESIUM [Suspect]
     Active Substance: PANTOPRAZOLE MAGNESIUM
     Indication: Product used for unknown indication
     Dosage: UNK
     Route: 065
  153. PANTOPRAZOLE SODIUM ANHYDROUS [Suspect]
     Active Substance: PANTOPRAZOLE SODIUM ANHYDROUS
     Indication: Product used for unknown indication
     Dosage: UNK
     Route: 065
  154. HERBALS\PLANTAGO OVATA LEAF [Suspect]
     Active Substance: HERBALS\PLANTAGO OVATA LEAF
     Indication: Product used for unknown indication
     Dosage: UNK
     Route: 065
  155. PSYLLIUM HUSKS [Suspect]
     Active Substance: PSYLLIUM HUSK
     Indication: Product used for unknown indication
     Dosage: UNK
     Route: 065
  156. QUETIAPINE FUMARATE [Suspect]
     Active Substance: QUETIAPINE FUMARATE
     Indication: Product used for unknown indication
     Dosage: UNK
     Route: 065
  157. RANITIDINE HYDROCHLORIDE [Suspect]
     Active Substance: RANITIDINE HYDROCHLORIDE
     Indication: Product used for unknown indication
     Dosage: UNK
     Route: 065
  158. RANITIDINE HYDROCHLORIDE [Suspect]
     Active Substance: RANITIDINE HYDROCHLORIDE
     Dosage: 20 MILLIGRAM, QD
     Route: 065
  159. RANITIDINE HYDROCHLORIDE [Suspect]
     Active Substance: RANITIDINE HYDROCHLORIDE
     Dosage: UNK
     Route: 065
  160. RANITIDINE HYDROCHLORIDE [Suspect]
     Active Substance: RANITIDINE HYDROCHLORIDE
     Dosage: UNK
     Route: 065
  161. RANITIDINE HYDROCHLORIDE [Suspect]
     Active Substance: RANITIDINE HYDROCHLORIDE
     Dosage: UNK
     Route: 065
  162. RANITIDINE HYDROCHLORIDE [Suspect]
     Active Substance: RANITIDINE HYDROCHLORIDE
     Dosage: 20 MILLIGRAM
     Route: 065
  163. RANITIDINE HYDROCHLORIDE [Suspect]
     Active Substance: RANITIDINE HYDROCHLORIDE
     Dosage: 20 MILLIGRAM, QD
     Route: 065
  164. RANITIDINE HYDROCHLORIDE [Suspect]
     Active Substance: RANITIDINE HYDROCHLORIDE
     Dosage: 20 MILLIGRAM, QD
     Route: 065
  165. RANITIDINE HYDROCHLORIDE [Suspect]
     Active Substance: RANITIDINE HYDROCHLORIDE
     Dosage: 20 MILLIGRAM, QD
     Route: 065
  166. REMICADE [Suspect]
     Active Substance: INFLIXIMAB
     Indication: Product used for unknown indication
     Dosage: UNK
     Route: 042
  167. REMICADE [Suspect]
     Active Substance: INFLIXIMAB
     Dosage: UNK
     Route: 042
  168. CHLORMEZANONE [Suspect]
     Active Substance: CHLORMEZANONE
     Indication: Product used for unknown indication
     Dosage: UNK
     Route: 065
  169. CHLORMEZANONE [Suspect]
     Active Substance: CHLORMEZANONE
     Dosage: UNK
     Route: 065
  170. RITUXIMAB [Suspect]
     Active Substance: RITUXIMAB
     Indication: Rheumatoid arthritis
     Dosage: 1000 MILLIGRAM, QD
     Route: 042
  171. RITUXIMAB [Suspect]
     Active Substance: RITUXIMAB
     Indication: Product used for unknown indication
     Dosage: 1000 MILLIGRAM, QD
     Route: 042
  172. RITUXIMAB [Suspect]
     Active Substance: RITUXIMAB
     Dosage: 1000 MILLIGRAM
     Route: 042
  173. RITUXIMAB [Suspect]
     Active Substance: RITUXIMAB
     Dosage: 1000 MILLIGRAM
     Route: 042
  174. RITUXIMAB [Suspect]
     Active Substance: RITUXIMAB
     Dosage: 1000 MILLIGRAM, QD
     Route: 042
  175. RITUXIMAB [Suspect]
     Active Substance: RITUXIMAB
     Dosage: 1000 MILLIGRAM, QD
     Route: 042
  176. RITUXIMAB [Suspect]
     Active Substance: RITUXIMAB
     Dosage: 1000 MILLIGRAM, QD
     Route: 042
  177. RITUXIMAB [Suspect]
     Active Substance: RITUXIMAB
     Dosage: 1000 MILLIGRAM
     Route: 042
  178. RITUXIMAB [Suspect]
     Active Substance: RITUXIMAB
     Dosage: 1000 MILLIGRAM
     Route: 042
  179. RITUXIMAB [Suspect]
     Active Substance: RITUXIMAB
     Dosage: 1000 MILLIGRAM
     Route: 042
  180. RITUXIMAB [Suspect]
     Active Substance: RITUXIMAB
     Dosage: 1000 MILLIGRAM
     Route: 042
  181. RITUXIMAB [Suspect]
     Active Substance: RITUXIMAB
     Dosage: 1000 MILLIGRAM, QD
     Route: 042
  182. RITUXIMAB [Suspect]
     Active Substance: RITUXIMAB
     Dosage: 1000 MILLIGRAM
     Route: 042
  183. RITUXIMAB [Suspect]
     Active Substance: RITUXIMAB
     Indication: Rheumatoid arthritis
     Dosage: UNK
     Route: 042
  184. RITUXIMAB [Suspect]
     Active Substance: RITUXIMAB
     Indication: Product used for unknown indication
  185. ALBUTEROL [Suspect]
     Active Substance: ALBUTEROL
     Indication: Product used for unknown indication
     Dosage: UNK
     Route: 065
  186. ALBUTEROL [Suspect]
     Active Substance: ALBUTEROL
     Dosage: UNK
     Route: 065
  187. ALBUTEROL [Suspect]
     Active Substance: ALBUTEROL
     Dosage: UNK
     Route: 065
  188. ALBUTEROL [Suspect]
     Active Substance: ALBUTEROL
     Dosage: UNK
     Route: 065
  189. SENNA LEAF [Suspect]
     Active Substance: SENNA LEAF
     Indication: Product used for unknown indication
     Dosage: UNK
     Route: 065
  190. SENNA LEAF [Suspect]
     Active Substance: SENNA LEAF
     Indication: Product used for unknown indication
     Dosage: UNK
     Route: 048
  191. SENNA LEAF [Suspect]
     Active Substance: SENNA LEAF
     Dosage: UNK
     Route: 048
  192. SENNA LEAF [Suspect]
     Active Substance: SENNA LEAF
     Dosage: UNK
     Route: 065
  193. SENNA LEAF [Suspect]
     Active Substance: SENNA LEAF
     Indication: Product used for unknown indication
     Dosage: UNK (DROPS ORAL)
     Route: 065
  194. SENNA LEAF [Suspect]
     Active Substance: SENNA LEAF
     Indication: Product used for unknown indication
     Dosage: 8.6 MILLIGRAM
     Route: 065
  195. SENNA LEAF [Suspect]
     Active Substance: SENNA LEAF
     Dosage: 8.5 MILLIGRAM
     Route: 065
  196. SENNA LEAF [Suspect]
     Active Substance: SENNA LEAF
     Dosage: UNK
     Route: 065
  197. SENOKOT [Suspect]
     Active Substance: SENNOSIDES
     Indication: Product used for unknown indication
     Dosage: UNK
     Route: 065
  198. SENOKOT [Suspect]
     Active Substance: SENNOSIDES
     Indication: Product used for unknown indication
     Dosage: UNK
     Route: 065
  199. SODIUM PICOSULFATE [Suspect]
     Active Substance: SODIUM PICOSULFATE
     Indication: Product used for unknown indication
     Dosage: UNK
     Route: 065
  200. PANTOPRAZOLE MAGNESIUM [Suspect]
     Active Substance: PANTOPRAZOLE MAGNESIUM
     Indication: Product used for unknown indication
     Dosage: UNK
     Route: 065
  201. TEMAZEPAM [Suspect]
     Active Substance: TEMAZEPAM
     Indication: Product used for unknown indication
     Dosage: UNK
     Route: 065
  202. TOCILIZUMAB [Suspect]
     Active Substance: TOCILIZUMAB
     Indication: Product used for unknown indication
     Dosage: 500 MILLIGRAM, Q12H
     Route: 058
  203. TOCILIZUMAB [Suspect]
     Active Substance: TOCILIZUMAB
     Indication: Rheumatoid arthritis
     Dosage: UNK
     Route: 058
  204. TOCILIZUMAB [Suspect]
     Active Substance: TOCILIZUMAB
     Dosage: UNK
     Route: 065
  205. TYLENOL [Suspect]
     Active Substance: ACETAMINOPHEN
     Indication: Product used for unknown indication
     Dosage: UNK
     Route: 065
  206. VENLAFAXINE HYDROCHLORIDE [Suspect]
     Active Substance: VENLAFAXINE HYDROCHLORIDE
     Indication: Product used for unknown indication
     Dosage: UNK
     Route: 065
  207. VENTOLIN [Suspect]
     Active Substance: ALBUTEROL SULFATE
     Indication: Product used for unknown indication
     Dosage: UNK
     Route: 065
  208. VENTOLIN [Suspect]
     Active Substance: ALBUTEROL SULFATE
     Dosage: UNK
     Route: 065
  209. ASCORBIC ACID [Suspect]
     Active Substance: ASCORBIC ACID
     Indication: Product used for unknown indication
     Dosage: UNK
     Route: 065
  210. ASCORBIC ACID [Suspect]
     Active Substance: ASCORBIC ACID
     Indication: Product used for unknown indication
     Dosage: UNK
     Route: 065
  211. ASCORBIC ACID [Suspect]
     Active Substance: ASCORBIC ACID
     Dosage: UNK
     Route: 065
  212. ASCORBIC ACID [Suspect]
     Active Substance: ASCORBIC ACID
     Indication: Product used for unknown indication
     Dosage: UNK
     Route: 065
  213. ASCORBIC ACID [Suspect]
     Active Substance: ASCORBIC ACID
     Dosage: UNK
     Route: 065
  214. WELLBUTRIN [Suspect]
     Active Substance: BUPROPION HYDROCHLORIDE
     Indication: Product used for unknown indication
     Dosage: UNK
     Route: 065
  215. WELLBUTRIN [Suspect]
     Active Substance: BUPROPION HYDROCHLORIDE
     Dosage: 150 MILLIGRAM
     Route: 065
  216. WELLBUTRIN [Suspect]
     Active Substance: BUPROPION HYDROCHLORIDE
     Dosage: UNK
     Route: 065
  217. WELLBUTRIN [Suspect]
     Active Substance: BUPROPION HYDROCHLORIDE
     Dosage: UNK
     Route: 065
  218. WELLBUTRIN [Suspect]
     Active Substance: BUPROPION HYDROCHLORIDE
     Dosage: 150 MILLIGRAM
     Route: 065
  219. WELLBUTRIN [Suspect]
     Active Substance: BUPROPION HYDROCHLORIDE
     Dosage: 150 MILLIGRAM
     Route: 065
  220. WELLBUTRIN [Suspect]
     Active Substance: BUPROPION HYDROCHLORIDE
     Dosage: UNK
     Route: 065
  221. ZOPICLONE [Suspect]
     Active Substance: ZOPICLONE
     Indication: Product used for unknown indication
     Dosage: UNK
     Route: 065

REACTIONS (9)
  - Food allergy [Not Recovered/Not Resolved]
  - Exposure during pregnancy [Not Recovered/Not Resolved]
  - Headache [Not Recovered/Not Resolved]
  - Hepatic enzyme increased [Not Recovered/Not Resolved]
  - Hyperhidrosis [Not Recovered/Not Resolved]
  - Hypersensitivity [Not Recovered/Not Resolved]
  - Hypertension [Not Recovered/Not Resolved]
  - Immunodeficiency [Not Recovered/Not Resolved]
  - Joint swelling [Not Recovered/Not Resolved]
